FAERS Safety Report 4561200-3 (Version None)
Quarter: 2005Q1

REPORT INFORMATION
  Report Type: 
  Country: None (occurrence: None)
  Receive Date: 20050121
  Receipt Date: 20050114
  Transmission Date: 20050727
  Serious: Yes (Hospitalization)
  Sender: FDA-Public Use
  Company Number: 211818

PATIENT
  Age: 44 Year
  Sex: Female

DRUGS (1)
  1. XOLAIR [Suspect]
     Dosage: 150 MG, Q2W
     Dates: start: 20041007

REACTIONS (3)
  - LARYNGOSPASM [None]
  - RESPIRATORY DISTRESS [None]
  - RHONCHI [None]
